FAERS Safety Report 6666076-6 (Version None)
Quarter: 2010Q1

REPORT INFORMATION
  Report Type: 
  Country: None (occurrence: None)
  Receive Date: 20100330
  Receipt Date: 20100318
  Transmission Date: 20100710
  Serious: Yes (Disabling)
  Sender: FDA-Public Use
  Company Number: 2010-0681

PATIENT
  Age: 57 Year
  Sex: Female
  Weight: 70.5 kg

DRUGS (1)
  1. DYSPORT (BOTULINUM TOXIN TYPE A) (ABOBOTULINUMTOXINA) [Suspect]
     Indication: SKIN WRINKLING
     Dosage: 50 UNITS (50 UNITS, SINGLE CYCLE),INTRAMUSCULAR
     Route: 030
     Dates: start: 20091117, end: 20091117

REACTIONS (11)
  - ASTHENIA [None]
  - BLOOD PRESSURE INCREASED [None]
  - CARDIAC DISORDER [None]
  - DYSPHAGIA [None]
  - HYPOAESTHESIA [None]
  - LUNG DISORDER [None]
  - NERVOUS SYSTEM DISORDER [None]
  - NEUROPATHY PERIPHERAL [None]
  - NONSPECIFIC REACTION [None]
  - PARAESTHESIA [None]
  - PRODUCT RECONSTITUTION ISSUE [None]
